FAERS Safety Report 4630802-8 (Version None)
Quarter: 2005Q2

REPORT INFORMATION
  Report Type: 
  Country: None (occurrence: None)
  Receive Date: 20050406
  Receipt Date: 20050325
  Transmission Date: 20051028
  Serious: Yes (Hospitalization)
  Sender: FDA-Public Use
  Company Number: FABR-11048

PATIENT
  Age: 67 Year
  Sex: Male
  Weight: 92 kg

DRUGS (13)
  1. FABRAZYME [Suspect]
     Indication: FABRY'S DISEASE
     Dosage: 105 MG Q2WKS IV
     Route: 042
     Dates: start: 20040205
  2. GLYBURIDE [Concomitant]
  3. AVANDIA [Concomitant]
  4. HYDRODIURIL [Concomitant]
  5. TOPROL-XL [Concomitant]
  6. SPIRONOLACTONE [Concomitant]
  7. ZOCOR [Concomitant]
  8. DUONEB [Concomitant]
  9. ADVAIR DISKUS 100/50 [Concomitant]
  10. LISINOPRIL [Concomitant]
  11. DIOVAN [Concomitant]
  12. VITAMIN E [Concomitant]
  13. ASPIRIN [Concomitant]

REACTIONS (5)
  - ARTHRALGIA [None]
  - CONDITION AGGRAVATED [None]
  - JOINT SWELLING [None]
  - LOOSE BODY IN JOINT [None]
  - SYNOVIAL DISORDER [None]
